FAERS Safety Report 16062397 (Version 2)
Quarter: 2021Q1

REPORT INFORMATION
  Report Type: Spontaneous
  Country: US (occurrence: US)
  Receive Date: 20190312
  Receipt Date: 20210310
  Transmission Date: 20210419
  Serious: No
  Sender: FDA-Public Use
  Company Number: US-SA-2019SA063606

PATIENT
  Age: 71 Year
  Sex: Male

DRUGS (2)
  1. DUPIXENT [Suspect]
     Active Substance: DUPILUMAB
     Dosage: 300 MG, QOW
     Route: 058
  2. DUPIXENT [Suspect]
     Active Substance: DUPILUMAB
     Dosage: 600 MG, 1X
     Route: 058
     Dates: start: 20180507, end: 20180507

REACTIONS (2)
  - Injection site pain [Not Recovered/Not Resolved]
  - Injection site induration [Not Recovered/Not Resolved]

NARRATIVE: CASE EVENT DATE: 201811
